FAERS Safety Report 9321485 (Version 2)
Quarter: 2013Q2

REPORT INFORMATION
  Report Type: Spontaneous
  Country: CA (occurrence: CA)
  Receive Date: 20130531
  Receipt Date: 20130627
  Transmission Date: 20140414
  Serious: Yes (Hospitalization, Other)
  Sender: FDA-Public Use
  Company Number: CA-BRISTOL-MYERS SQUIBB COMPANY-18960211

PATIENT
  Age: 92 Year
  Sex: Female

DRUGS (8)
  1. ELIQUIS [Suspect]
     Indication: ATRIAL FIBRILLATION
     Route: 048
     Dates: start: 20130422
  2. LOSEC [Concomitant]
     Dosage: TABLET DR OD PM?3 MONTHS 3 REPEATS
     Dates: start: 20130427
  3. REQUIP [Concomitant]
     Dosage: TABLET?3 MONTHS 1 REPEAT
     Dates: start: 20130427
  4. OXAZEPAM [Concomitant]
     Dosage: TABLET Q HRS ?3 MONTHS
     Dates: start: 20130427
  5. NORVASC [Concomitant]
     Dosage: TABLET?0.5 TABLET ?3 MONTHS
     Route: 048
     Dates: start: 20130427
  6. FUROSEMIDE [Concomitant]
     Dosage: TABLET?90 TABLET : 1 REPEAT
     Dates: start: 20130511
  7. RAMIPRIL [Concomitant]
     Dosage: CAPSULE?3 MONTHS 1 REPEAT
     Dates: start: 20130514
  8. AMIODARONE [Concomitant]
     Dosage: 1 TABLET?5 DAYS A WEEK
     Dates: start: 20130523

REACTIONS (1)
  - Ischaemic stroke [Unknown]
